FAERS Safety Report 9425110 (Version 1)
Quarter: 2013Q3

REPORT INFORMATION
  Report Type: Spontaneous
  Country: JP (occurrence: JP)
  Receive Date: 20130729
  Receipt Date: 20130729
  Transmission Date: 20140515
  Serious: Yes (Hospitalization)
  Sender: FDA-Public Use
  Company Number: JP-B.I. PHARMACEUTICALS,INC./RIDGEFIELD-2013-BI-22058NB

PATIENT
  Age: 77 Year
  Sex: Male

DRUGS (3)
  1. PRADAXA [Suspect]
     Dosage: 220 MG
     Route: 048
     Dates: start: 20120424
  2. BAYASPIRIN [Suspect]
     Route: 048
  3. PLETAAL [Suspect]
     Route: 048

REACTIONS (2)
  - Haematemesis [Not Recovered/Not Resolved]
  - Shock [Unknown]
